FAERS Safety Report 18611071 (Version 1)
Quarter: 2020Q4

REPORT INFORMATION
  Report Type: Spontaneous
  Country: US (occurrence: US)
  Receive Date: 20201214
  Receipt Date: 20201214
  Transmission Date: 20210114
  Serious: Yes (Other)
  Sender: FDA-Public Use
  Company Number: US-PFIZER INC-2020488464

PATIENT
  Age: 44 Year
  Sex: Female
  Weight: 91.84 kg

DRUGS (3)
  1. AIMOVIG [Interacting]
     Active Substance: ERENUMAB-AOOE
     Indication: MIGRAINE
     Dosage: 140 MG, MONTHLY (TWO 70 MG AIMOVIG SURECLICKS, AND INJECTION WAS GIVEN IN THE RIGHT ARM)
     Dates: start: 20200922
  2. PRISTIQ EXTENDED-RELEASE [Suspect]
     Active Substance: DESVENLAFAXINE SUCCINATE
     Dosage: UNK
  3. AIMOVIG [Interacting]
     Active Substance: ERENUMAB-AOOE
     Indication: ABDOMINAL MIGRAINE

REACTIONS (11)
  - Drug interaction [Unknown]
  - Syncope [Not Recovered/Not Resolved]
  - Anxiety [Not Recovered/Not Resolved]
  - Injection site erythema [Not Recovered/Not Resolved]
  - Exposure via skin contact [Unknown]
  - Injection site pain [Not Recovered/Not Resolved]
  - Injection site swelling [Not Recovered/Not Resolved]
  - Accidental exposure to product [Unknown]
  - Wrong technique in product usage process [Unknown]
  - Dizziness [Not Recovered/Not Resolved]
  - Incorrect dose administered [Unknown]

NARRATIVE: CASE EVENT DATE: 20200922
